FAERS Safety Report 9040682 (Version 1)
Quarter: 2013Q1

REPORT INFORMATION
  Report Type: Report from Study
  Country: US (occurrence: US)
  Receive Date: 20130129
  Receipt Date: 20130129
  Transmission Date: 20140127
  Serious: No
  Sender: FDA-Public Use
  Company Number: US-ABBOTT-12P-163-0889539-00

PATIENT
  Age: 45 None
  Sex: Male
  Weight: 88.53 kg

DRUGS (3)
  1. HUMIRA 40 MG/0.8 ML PEN [Suspect]
     Indication: PSORIASIS
     Dates: start: 201105
  2. GABAPENTIN [Suspect]
     Indication: ABDOMINAL PAIN
     Dates: start: 20120103
  3. TALCLONEX [Concomitant]
     Indication: PSORIASIS
     Route: 061

REACTIONS (4)
  - Abdominal pain [Not Recovered/Not Resolved]
  - Herpes zoster [Not Recovered/Not Resolved]
  - Somnolence [Not Recovered/Not Resolved]
  - Weight increased [Not Recovered/Not Resolved]
